FAERS Safety Report 4301930-1 (Version None)
Quarter: 2004Q1

REPORT INFORMATION
  Report Type: 
  Country: None (occurrence: None)
  Receive Date: 20040220
  Receipt Date: 20040212
  Transmission Date: 20041129
  Serious: Yes (Hospitalization)
  Sender: FDA-Public Use
  Company Number: IT-JNJFOC-20040202857

PATIENT
  Age: 20 Year
  Sex: Female

DRUGS (1)
  1. REMICADE [Suspect]
     Indication: ANKYLOSING SPONDYLITIS
     Dosage: 250 MG, 1 IN 6 WEEK, INTRAVENOUS
     Route: 042
     Dates: start: 20030930, end: 20031223

REACTIONS (3)
  - DYSPNOEA [None]
  - LARYNGOSPASM [None]
  - MALAISE [None]
